FAERS Safety Report 7120054-1 (Version None)
Quarter: 2010Q4

REPORT INFORMATION
  Report Type: 
  Country: None (occurrence: None)
  Receive Date: 20101123
  Receipt Date: 20101117
  Transmission Date: 20110411
  Serious: Yes (Other)
  Sender: FDA-Public Use
  Company Number: US-B.I. PHARMACEUTICALS,INC./RIDGEFIELD-2010-BP-10916BP

PATIENT
  Age: 83 Year
  Sex: Female

DRUGS (9)
  1. AGGRENOX [Suspect]
     Indication: TRANSIENT ISCHAEMIC ATTACK
     Route: 048
     Dates: start: 20050101
  2. TYLENOL (CAPLET) [Concomitant]
     Indication: OSTEOARTHRITIS
  3. SIMVASTATIN [Concomitant]
     Indication: BLOOD CHOLESTEROL INCREASED
  4. LISINOPRIL AND HYDROCHLOROTHIAZIDE [Concomitant]
  5. OMEPRAZOLE [Concomitant]
  6. PRILOSEC [Concomitant]
  7. CALCIUM WITH D [Concomitant]
  8. PERSERVE VISION [Concomitant]
  9. ONE A DAY [Concomitant]

REACTIONS (3)
  - MACULAR DEGENERATION [None]
  - RETINAL HAEMORRHAGE [None]
  - VISUAL ACUITY REDUCED [None]
